FAERS Safety Report 6125790-1 (Version None)
Quarter: 2009Q1

REPORT INFORMATION
  Report Type: 
  Country: None (occurrence: None)
  Receive Date: 20090318
  Receipt Date: 20090313
  Transmission Date: 20090719
  Serious: Yes (Other)
  Sender: FDA-Public Use
  Company Number: 2009000637

PATIENT
  Age: 66 Year
  Sex: Male

DRUGS (4)
  1. MACUGEN [Suspect]
     Dosage: (0.3 MG), INTRA-VITREAL
     Dates: start: 20070607
  2. TOBREX TOBRAMYCIN SULFATE) [Concomitant]
  3. VESSEL (SULODEXIDE) [Concomitant]
  4. OCUVITE (OCUVITE) [Concomitant]

REACTIONS (2)
  - BLINDNESS TRANSIENT [None]
  - INTRAOCULAR PRESSURE INCREASED [None]
